FAERS Safety Report 4759404-X (Version None)
Quarter: 2005Q3

REPORT INFORMATION
  Report Type: 
  Country: None (occurrence: None)
  Receive Date: 20050901
  Receipt Date: 20050804
  Transmission Date: 20060218
  Serious: Yes (Other)
  Sender: FDA-Public Use
  Company Number: CA-ABBOTT-05P-028-0307736-00

PATIENT
  Sex: Female
  Weight: 9.5 kg

DRUGS (7)
  1. BIAXIN [Suspect]
     Indication: PNEUMONIA
     Dates: start: 20050801, end: 20050804
  2. METOCLOPRAMIDE [Concomitant]
     Indication: DRUG USE FOR UNKNOWN INDICATION
     Dosage: NOT REPORTED
  3. NYSTATIN [Concomitant]
     Indication: DRUG USE FOR UNKNOWN INDICATION
     Dosage: NOT REPORTED
  4. BACTRIM [Concomitant]
     Indication: PROPHYLAXIS
     Dosage: NOT REPORTED
  5. CYCLOSPORINE [Concomitant]
     Indication: DRUG USE FOR UNKNOWN INDICATION
     Dosage: EVERY 12 HOURS
  6. MORPHINE [Concomitant]
     Indication: DRUG USE FOR UNKNOWN INDICATION
     Dosage: NOT REPORTED
  7. CEFUROXIME [Concomitant]
     Indication: DRUG USE FOR UNKNOWN INDICATION
     Route: 042
     Dates: start: 20050801

REACTIONS (1)
  - MEDICAL DEVICE COMPLICATION [None]
